FAERS Safety Report 4501060-X (Version None)
Quarter: 2004Q4

REPORT INFORMATION
  Report Type: 
  Country: None (occurrence: None)
  Receive Date: 20041115
  Receipt Date: 20041110
  Transmission Date: 20050328
  Serious: Yes (Hospitalization)
  Sender: FDA-Public Use
  Company Number: US-BRISTOL-MYERS SQUIBB COMPANY-12761920

PATIENT
  Age: 54 Year
  Sex: Male

DRUGS (5)
  1. IFEX [Suspect]
     Indication: B-CELL LYMPHOMA
     Dates: start: 20041106, end: 20041106
  2. VEPESID [Suspect]
     Indication: B-CELL LYMPHOMA
     Dates: start: 20041106, end: 20041106
  3. MESNEX [Suspect]
     Indication: B-CELL LYMPHOMA
     Dates: start: 20041106, end: 20041106
  4. PARAPLATIN [Suspect]
     Indication: B-CELL LYMPHOMA
     Dates: start: 20041106, end: 20041106
  5. RITUXIMAB [Suspect]
     Indication: B-CELL LYMPHOMA
     Dates: start: 20041106, end: 20041106

REACTIONS (2)
  - ABDOMINAL PAIN [None]
  - ILEUS [None]
